FAERS Safety Report 7542143-X (Version None)
Quarter: 2011Q2

REPORT INFORMATION
  Report Type: 
  Country: None (occurrence: None)
  Receive Date: 20110606
  Receipt Date: 20110525
  Transmission Date: 20111010
  Serious: Yes (Other)
  Sender: FDA-Public Use
  Company Number: MSTR-NO-11025-0059

PATIENT
  Age: 74 Year
  Sex: Male

DRUGS (2)
  1. ESTRAMUSTINE (ESTRAMUSTINE) [Concomitant]
  2. METASTRON [Suspect]
     Indication: METASTATIC PAIN
     Dosage: 120 MBQ, SINGLE DOSE, INTRAVENOUS
     Route: 042
     Dates: start: 20090616, end: 20090616

REACTIONS (1)
  - ANAEMIA [None]
